FAERS Safety Report 9339574 (Version 2)
Quarter: 2013Q3

REPORT INFORMATION
  Report Type: Spontaneous
  Country: FR (occurrence: FR)
  Receive Date: 20130610
  Receipt Date: 20130812
  Transmission Date: 20140515
  Serious: Yes (Hospitalization)
  Sender: FDA-Public Use
  Company Number: FR-SANOFI-AVENTIS-2013SA055209

PATIENT
  Age: 18 Year
  Sex: Female

DRUGS (6)
  1. LOVENOX [Suspect]
     Indication: PRODUCT USED FOR UNKNOWN INDICATION
     Route: 058
     Dates: start: 20130411, end: 20130508
  2. DIAZEPAM [Concomitant]
  3. MIDODRINE [Concomitant]
  4. THERALENE [Concomitant]
  5. SEROPLEX [Concomitant]
  6. TRANSIPEG [Concomitant]

REACTIONS (3)
  - Anaemia [Not Recovered/Not Resolved]
  - Neutropenia [Not Recovered/Not Resolved]
  - Heparin-induced thrombocytopenia [Recovered/Resolved]
